FAERS Safety Report 4898184-4 (Version None)
Quarter: 2006Q1

REPORT INFORMATION
  Report Type: 
  Country: None (occurrence: None)
  Receive Date: 20060127
  Receipt Date: 20060111
  Transmission Date: 20060701
  Serious: No
  Sender: FDA-Public Use
  Company Number: TRP_0689_2006

PATIENT
  Age: 47 Year
  Sex: Female

DRUGS (5)
  1. RIBASPHERE [Suspect]
     Indication: HEPATITIS C
     Dosage: DF PO
     Route: 048
  2. PEG-INTRON [Suspect]
     Indication: HEPATITIS C
     Dosage: DF SC
     Route: 058
     Dates: start: 20050119
  3. RIBAVIRIN [Suspect]
     Indication: HEPATITIS C
     Dosage: DF PO
     Route: 048
     Dates: start: 20050119
  4. MULTIVITAMIN [Concomitant]
  5. EXTRA STRENGTH TYLENOL [Concomitant]

REACTIONS (4)
  - DEHYDRATION [None]
  - DIARRHOEA [None]
  - FATIGUE [None]
  - NAUSEA [None]
